FAERS Safety Report 16139906 (Version 1)
Quarter: 2019Q2

REPORT INFORMATION
  Report Type: Spontaneous
  Country: US (occurrence: US)
  Receive Date: 20190329
  Receipt Date: 20190329
  Transmission Date: 20190711
  Serious: Yes (Other)
  Sender: FDA-Public Use
  Company Number: None

PATIENT
  Age: 68 Year
  Sex: Female

DRUGS (1)
  1. NITRO-BID [Suspect]
     Active Substance: NITROGLYCERIN
     Indication: ARTERIOSCLEROSIS CORONARY ARTERY
     Route: 061
     Dates: start: 20181218, end: 20181218

REACTIONS (2)
  - Thermal burn [None]
  - Application site burn [None]

NARRATIVE: CASE EVENT DATE: 20181218
